FAERS Safety Report 17289132 (Version 1)
Quarter: 2020Q1

REPORT INFORMATION
  Report Type: Spontaneous
  Country: US (occurrence: US)
  Receive Date: 20200120
  Receipt Date: 20200120
  Transmission Date: 20200409
  Serious: No
  Sender: FDA-Public Use
  Company Number: US-JACOBUS PHARMACEUTICAL COMPANY, INC.-2079194

PATIENT

DRUGS (1)
  1. RUZURGI [Suspect]
     Active Substance: AMIFAMPRIDINE
     Dates: start: 20191018

REACTIONS (2)
  - Vision blurred [Unknown]
  - Vertigo [Unknown]

NARRATIVE: CASE EVENT DATE: 20191028
